FAERS Safety Report 22155153 (Version 1)
Quarter: 2023Q1

REPORT INFORMATION
  Report Type: Spontaneous
  Country: US (occurrence: None)
  Receive Date: 20230329
  Receipt Date: 20230329
  Transmission Date: 20230417
  Serious: No
  Sender: FDA-Public Use
  Company Number: None

PATIENT
  Age: 64 Year
  Sex: Female
  Weight: 54 kg

DRUGS (1)
  1. SYSTANE EYEDROPS [Suspect]
     Active Substance: POLYETHYLENE GLYCOL 400\PROPYLENE GLYCOL
     Indication: Dry eye
     Dosage: OTHER QUANTITY : 12 DROP(S);?OTHER FREQUENCY : 6 XS DAILY PER DRS;?
     Route: 047
     Dates: start: 20221001, end: 20230228

REACTIONS (4)
  - Recalled product administered [None]
  - Foreign body sensation in eyes [None]
  - Lacrimation increased [None]
  - Dry eye [None]
